FAERS Safety Report 8052115-7 (Version None)
Quarter: 2012Q1

REPORT INFORMATION
  Report Type: 
  Country: None (occurrence: None)
  Receive Date: 20120118
  Receipt Date: 20120110
  Transmission Date: 20120608
  Serious: No
  Sender: FDA-Public Use
  Company Number: US-PFIZER INC-2012008519

PATIENT
  Sex: Male

DRUGS (1)
  1. CORTEF [Suspect]

REACTIONS (5)
  - STRESS [None]
  - LETHARGY [None]
  - MALAISE [None]
  - FATIGUE [None]
  - BONE PAIN [None]
